FAERS Safety Report 6443472-3 (Version None)
Quarter: 2009Q4

REPORT INFORMATION
  Report Type: 
  Country: None (occurrence: None)
  Receive Date: 20091117
  Receipt Date: 20091111
  Transmission Date: 20100525
  Serious: Yes (Life-Threatening, Hospitalization, Other)
  Sender: FDA-Public Use
  Company Number: DK-NOVOPROD-292613

PATIENT
  Sex: Female
  Weight: 83.7 kg

DRUGS (2)
  1. INSULIN DETEMIR FLEXPEN [Suspect]
     Indication: TYPE 1 DIABETES MELLITUS
     Dosage: 60 IU, QD
     Route: 058
     Dates: start: 20090930
  2. NOVOLOG [Suspect]
     Indication: TYPE 1 DIABETES MELLITUS
     Dosage: 38 IU, QD
     Route: 058
     Dates: start: 20090930

REACTIONS (1)
  - SUICIDAL IDEATION [None]
